FAERS Safety Report 7212711-3 (Version None)
Quarter: 2011Q1

REPORT INFORMATION
  Report Type: 
  Country: None (occurrence: None)
  Receive Date: 20110106
  Receipt Date: 20101227
  Transmission Date: 20110831
  Serious: Yes (Other)
  Sender: FDA-Public Use
  Company Number: SE-JNJFOC-20101208326

PATIENT
  Sex: Female
  Weight: 11 kg

DRUGS (3)
  1. IPREN [Suspect]
     Indication: OROPHARYNGEAL PAIN
     Dosage: 62.5MG  TWICE, THEN 125 MG SUPPOSITORY
     Route: 054
  2. ALVEDON [Concomitant]
     Indication: PYREXIA
  3. IPREN [Suspect]
     Indication: PYREXIA
     Dosage: 62.5MG  TWICE, THEN 125 MG SUPPOSITORY
     Route: 054

REACTIONS (3)
  - CONFUSIONAL STATE [None]
  - ANXIETY [None]
  - DEPRESSED LEVEL OF CONSCIOUSNESS [None]
